FAERS Safety Report 9984791 (Version 2)
Quarter: 2014Q1

REPORT INFORMATION
  Report Type: Report from Study
  Country: PR (occurrence: PR)
  Receive Date: 20140304
  Receipt Date: 20140304
  Transmission Date: 20141002
  Serious: No
  Sender: FDA-Public Use
  Company Number: PR-ABBVIE-13P-131-1074535-00

PATIENT
  Age: 49 Year
  Sex: Female

DRUGS (4)
  1. HUMIRA [Suspect]
     Indication: RHEUMATOID ARTHRITIS
     Route: 058
     Dates: start: 201204, end: 201211
  2. HUMIRA [Suspect]
     Route: 058
     Dates: end: 201301
  3. HUMIRA [Suspect]
     Route: 058
     Dates: end: 20130422
  4. METHOTREXATE [Concomitant]
     Indication: RHEUMATOID ARTHRITIS
     Dates: start: 2007

REACTIONS (4)
  - Malaise [Unknown]
  - Laryngitis [Recovered/Resolved]
  - Laryngitis [Recovered/Resolved]
  - Sinusitis [Recovering/Resolving]
